FAERS Safety Report 24933356 (Version 1)
Quarter: 2025Q1

REPORT INFORMATION
  Report Type: Spontaneous
  Country: FR (occurrence: FR)
  Receive Date: 20250206
  Receipt Date: 20250206
  Transmission Date: 20250408
  Serious: Yes (Hospitalization, Other)
  Sender: Haleon PLC
  Company Number: None

PATIENT
  Age: 88 Year
  Sex: Male

DRUGS (7)
  1. IBUPROFEN [Suspect]
     Active Substance: IBUPROFEN
     Indication: Neck pain
     Route: 048
     Dates: start: 20100315, end: 20100320
  2. ALLOPURINOL [Concomitant]
     Active Substance: ALLOPURINOL
     Indication: Product used for unknown indication
     Dosage: 1 DF QD
     Route: 048
  3. BISOPROLOL FUMARATE\HYDROCHLOROTHIAZIDE [Concomitant]
     Active Substance: BISOPROLOL FUMARATE\HYDROCHLOROTHIAZIDE
     Indication: Product used for unknown indication
     Dosage: DOSAGE FORM: TABLETS
     Route: 048
  4. ZOCOR [Concomitant]
     Active Substance: SIMVASTATIN
     Indication: Product used for unknown indication
     Dosage: DOSAGE FORM: UNSPECIFIED/1 DF QD
     Route: 048
  5. ACETAMINOPHEN [Concomitant]
     Active Substance: ACETAMINOPHEN
     Indication: Product used for unknown indication
     Route: 048
     Dates: start: 20100315
  6. TRAMADOL HYDROCHLORIDE [Suspect]
     Active Substance: TRAMADOL HYDROCHLORIDE
     Indication: Neck pain
     Route: 048
     Dates: start: 20100326, end: 20100417
  7. OMEPRAZOLE [Concomitant]
     Active Substance: OMEPRAZOLE
     Indication: Product used for unknown indication
     Dosage: 1 DF QD
     Route: 048

REACTIONS (4)
  - Stevens-Johnson syndrome [Recovered/Resolved]
  - Asthenia [Recovered/Resolved]
  - Decreased appetite [Recovered/Resolved]
  - Somnolence [Recovered/Resolved]

NARRATIVE: CASE EVENT DATE: 20100416
